FAERS Safety Report 23336377 (Version 2)
Quarter: 2024Q1

REPORT INFORMATION
  Report Type: Report from Study
  Country: US (occurrence: US)
  Receive Date: 20231225
  Receipt Date: 20240101
  Transmission Date: 20240410
  Serious: Yes (Hospitalization)
  Sender: FDA-Public Use
  Company Number: US-ABBVIE-5555313

PATIENT
  Sex: Male

DRUGS (1)
  1. HUMIRA [Suspect]
     Active Substance: ADALIMUMAB
     Indication: Colitis ulcerative
     Route: 058
     Dates: start: 20230807

REACTIONS (4)
  - Renal function test abnormal [Recovering/Resolving]
  - Dehydration [Recovering/Resolving]
  - Peripheral swelling [Recovering/Resolving]
  - Muscle disorder [Recovering/Resolving]

NARRATIVE: CASE EVENT DATE: 20230101
